FAERS Safety Report 16524577 (Version 2)
Quarter: 2019Q3

REPORT INFORMATION
  Report Type: Other
  Country: US (occurrence: US)
  Receive Date: 20190703
  Receipt Date: 20190820
  Transmission Date: 20191004
  Serious: Yes (Hospitalization, Other)
  Sender: FDA-Public Use
  Company Number: US-AMAG PHARMACEUTICALS, INC.-AMAG201903387

PATIENT
  Age: 31 Year
  Sex: Female
  Weight: 64.92 kg

DRUGS (24)
  1. ZOFRAN ODT [Concomitant]
     Active Substance: ONDANSETRON HYDROCHLORIDE
     Indication: NAUSEA
     Dates: start: 20190607, end: 20190618
  2. MAGNESIUM HYDROXIDE. [Concomitant]
     Active Substance: MAGNESIUM HYDROXIDE
     Indication: CONSTIPATION
     Dates: start: 20190617, end: 20190618
  3. SIMETHICONE (DIMETHICONE) [Concomitant]
     Active Substance: DIMETHICONE
     Indication: FLATULENCE
     Dates: start: 20190617, end: 20190618
  4. MAKENA [Suspect]
     Active Substance: HYDROXYPROGESTERONE CAPROATE
     Indication: PREMATURE DELIVERY
     Dosage: 250 MG/ML, WEEKLY
     Route: 058
     Dates: start: 20190329, end: 20190614
  5. CALCIUM GLUCONATE. [Concomitant]
     Active Substance: CALCIUM GLUCONATE
     Indication: BLOOD MAGNESIUM INCREASED
     Dates: start: 20190616, end: 20190617
  6. D5 1/2 NS SOLUTION [Concomitant]
     Indication: PREMATURE LABOUR
     Dosage: 125 ML/HR CONTINUOUS IV
     Dates: start: 20190616, end: 20190616
  7. GLUCAGON (HUMAN RECOMBINANT) [Concomitant]
     Indication: PRODUCT USED FOR UNKNOWN INDICATION
     Dates: start: 20190616, end: 20190617
  8. DOCUSATE SODIUM. [Concomitant]
     Active Substance: DOCUSATE SODIUM
     Indication: PRODUCT USED FOR UNKNOWN INDICATION
  9. HYDROCODONE-ACETAMINOPHEN [Concomitant]
     Active Substance: ACETAMINOPHEN\HYDROCODONE
     Indication: PAIN
     Dosage: 5-325
  10. DERMOPLAST PAIN RELIEVING [Concomitant]
     Active Substance: BENZOCAINE\MENTHOL
     Indication: EPISIOTOMY
     Dates: start: 20190617, end: 20190618
  11. D50W SYRINGE [Concomitant]
     Indication: PRODUCT USED FOR UNKNOWN INDICATION
     Dates: start: 20190617, end: 20190617
  12. DIPHENHYDRAMINE. [Concomitant]
     Active Substance: DIPHENHYDRAMINE
     Indication: INSOMNIA
     Dates: start: 20190617, end: 20190618
  13. PROGESTERONE. [Concomitant]
     Active Substance: PROGESTERONE
     Route: 030
  14. OFIRMEV [Concomitant]
     Active Substance: ACETAMINOPHEN
     Indication: HEADACHE
     Dates: start: 20190616, end: 20190617
  15. ANUSOL-HC [Concomitant]
     Indication: ANORECTAL DISCOMFORT
     Dates: start: 20190617
  16. METHERGINE [Concomitant]
     Active Substance: METHYLERGONOVINE MALEATE
     Indication: HAEMORRHAGE
     Route: 030
     Dates: start: 20190617, end: 20190618
  17. NALOXONE [Concomitant]
     Active Substance: NALOXONE
     Indication: TOXICITY TO VARIOUS AGENTS
     Dates: start: 20190617, end: 20190618
  18. ZOFRAN ODT [Concomitant]
     Active Substance: ONDANSETRON HYDROCHLORIDE
     Indication: VOMITING
     Route: 042
     Dates: start: 20190616, end: 20190617
  19. POLY IRON PN FORTE [Concomitant]
     Indication: PREGNANCY
  20. INSULIN DRIP [Concomitant]
     Indication: TYPE 1 DIABETES MELLITUS
     Dosage: SLIDING SCALE
     Dates: start: 20190616, end: 20190616
  21. IBUPROFEN. [Concomitant]
     Active Substance: IBUPROFEN
     Indication: PAIN
     Dates: start: 20190617, end: 20190618
  22. HUMALOG [Concomitant]
     Active Substance: INSULIN LISPRO
     Indication: TYPE 1 DIABETES MELLITUS
     Dosage: SLIDING SCALE
  23. ALUM-MAG HYDROXIDE-SIMETH [Concomitant]
     Indication: DYSPEPSIA
     Dosage: 200-200-20 MG/5ML
  24. NORMAL SALINE [Concomitant]
     Active Substance: SODIUM CHLORIDE
     Indication: PREMATURE LABOUR
     Dosage: 1.25ML/HOUR - CONTINUOUS IV

REACTIONS (2)
  - Premature delivery [Recovered/Resolved]
  - Product dose omission [Unknown]

NARRATIVE: CASE EVENT DATE: 20190524
